FAERS Safety Report 5771656-6 (Version None)
Quarter: 2008Q2

REPORT INFORMATION
  Report Type: 
  Country: None (occurrence: None)
  Receive Date: 20080613
  Receipt Date: 20080605
  Transmission Date: 20081010
  Serious: No
  Sender: FDA-Public Use
  Company Number: GB-PFIZER INC-2008045581

PATIENT
  Age: 64 Year
  Sex: Female

DRUGS (5)
  1. PREDNISOLONE [Suspect]
     Indication: POSTOPERATIVE CARE
     Dosage: FREQ:EVERY DAY
     Route: 047
  2. TIMOLOL MALEATE [Suspect]
     Indication: POSTOPERATIVE CARE
     Dosage: FREQ:EVERY DAY
     Route: 047
  3. CEFUROXIME [Suspect]
     Indication: CORNEAL ABSCESS
     Dosage: FREQ:EVERY HOUR
     Route: 047
  4. EXOCIN [Suspect]
     Indication: CORNEAL ABSCESS
     Route: 047
  5. EXOCIN [Suspect]
     Route: 047

REACTIONS (1)
  - NO ADVERSE EVENT [None]
